FAERS Safety Report 9999122 (Version 2)
Quarter: 2014Q2

REPORT INFORMATION
  Report Type: Spontaneous
  Country: FR (occurrence: None)
  Receive Date: 20140310
  Receipt Date: 20140421
  Transmission Date: 20141212
  Serious: Yes (Other)
  Sender: FDA-Public Use
  Company Number: 2014058164

PATIENT
  Age: 48 Year
  Sex: Female

DRUGS (16)
  1. FRAGMINE [Suspect]
     Indication: ANTICOAGULANT THERAPY
     Dates: start: 20140113
  2. PERTUZUMAB [Suspect]
     Indication: HER-2 POSITIVE BREAST CANCER
     Dosage: 840 MG, CYCLIC, INTRAVENOUS
     Route: 042
     Dates: start: 20130805
  3. TRASTUZUMAB [Suspect]
     Indication: HER-2 POSITIVE BREAST CANCER
     Dosage: 8 MG/KG, CYCLIC, INTRAVENOUS
     Route: 042
     Dates: start: 20130806
  4. DOCETAXEL (DOCETAXEL) [Suspect]
     Indication: HER-2 POSITIVE BREAST CANCER
     Route: 042
     Dates: start: 20130806
  5. DOXYCYCLINE HYCLATE (DOXYCYCLINE HYCLATE) [Concomitant]
  6. SPASFON (PHLOROGLUCINOL, TRIMETHYPHLOROGLUCINOL) [Concomitant]
  7. TIORFAN (ACETORPHAN) UNKNOWN [Concomitant]
  8. TOPALGIC (TRAMADOL HYDROCHLORIDE) [Concomitant]
  9. PYOSTACINE (PRISTINAMYCIN) [Concomitant]
  10. LENOGRASTIM (LENOGRASTIM) [Concomitant]
  11. AMOXICILIN (AMOXICILLIN) [Concomitant]
  12. DOLIPRANE (PARACETAMOL) [Concomitant]
  13. IMOVANE (ZOPICLONE) [Concomitant]
  14. AUGMENTIN (AMOXICILLIN TRIHYDRATE, CLAVULANATE POTASSIUM) [Concomitant]
  15. IALUSET (HYALURONATE SODIUM) [Concomitant]
  16. NEFOPAM (NEFOPAM) [Concomitant]

REACTIONS (5)
  - Angioedema [None]
  - Wound complication [None]
  - Scar [None]
  - Impaired healing [None]
  - Neutropenia [None]
